FAERS Safety Report 18046334 (Version 1)
Quarter: 2020Q3

REPORT INFORMATION
  Report Type: Spontaneous
  Country: US (occurrence: US)
  Receive Date: 20200720
  Receipt Date: 20200720
  Transmission Date: 20201103
  Serious: No
  Sender: FDA-Public Use
  Company Number: US-PFIZER INC-2020275920

PATIENT
  Age: 60 Year
  Sex: Female
  Weight: 99.79 kg

DRUGS (2)
  1. EXEMESTANE. [Suspect]
     Active Substance: EXEMESTANE
     Dosage: 25 MG, SINGLE (ONCE/TAKING IT AROUND 3PM TO 5PM, EARLIER)
     Route: 048
     Dates: start: 202004
  2. PALBOCICLIB [Concomitant]
     Active Substance: PALBOCICLIB
     Dosage: 125 MG
     Dates: start: 201604

REACTIONS (1)
  - Sleep disorder [Unknown]
